FAERS Safety Report 19498270 (Version 1)
Quarter: 2021Q3

REPORT INFORMATION
  Report Type: Spontaneous
  Country: IT (occurrence: IT)
  Receive Date: 20210706
  Receipt Date: 20210706
  Transmission Date: 20211014
  Serious: Yes (Other)
  Sender: FDA-Public Use
  Company Number: IT-PFIZER INC-2021751900

PATIENT
  Age: 61 Year
  Sex: Female

DRUGS (2)
  1. PACLITAXEL. [Suspect]
     Active Substance: PACLITAXEL
     Indication: OVARIAN CANCER
     Dosage: 280 MG, CYCLIC
     Route: 042
     Dates: start: 20210326
  2. CARBOPLATIN. [Suspect]
     Active Substance: CARBOPLATIN
     Indication: OVARIAN CANCER
     Dosage: 637 MG, CYCLIC
     Route: 042
     Dates: start: 20210326

REACTIONS (3)
  - Neuropathy peripheral [Unknown]
  - Myalgia [Unknown]
  - Alopecia [Unknown]

NARRATIVE: CASE EVENT DATE: 20210607
